FAERS Safety Report 15256953 (Version 1)
Quarter: 2018Q3

REPORT INFORMATION
  Report Type: Other
  Country: JP (occurrence: JP)
  Receive Date: 20180808
  Receipt Date: 20180808
  Transmission Date: 20181010
  Serious: Yes (Death)
  Sender: FDA-Public Use
  Company Number: JP-OSMOTICA_PHARMACEUTICAL_US_LLC-POI0573201800179

PATIENT
  Age: 2 Year
  Sex: Male
  Weight: 11.5 kg

DRUGS (1)
  1. NIFEDIPINE EXTENDED?RELEASE TABLETS [Suspect]
     Active Substance: NIFEDIPINE
     Dosage: 280 MG MAXIMUM IMPLIED INGESTION
     Dates: start: 2017, end: 2017

REACTIONS (4)
  - Coma [Fatal]
  - Cardiac arrest [Fatal]
  - Toxicity to various agents [Fatal]
  - Accidental exposure to product by child [Fatal]

NARRATIVE: CASE EVENT DATE: 201701
